FAERS Safety Report 25839383 (Version 4)
Quarter: 2025Q4

REPORT INFORMATION
  Report Type: Spontaneous
  Country: JP (occurrence: JP)
  Receive Date: 20250924
  Receipt Date: 20251129
  Transmission Date: 20260118
  Serious: Yes (Hospitalization, Other)
  Sender: SANOFI AVENTIS
  Company Number: JP-SA-2025SA278165

PATIENT
  Age: 72 Year
  Sex: Female
  Weight: 53.8 kg

DRUGS (7)
  1. DOCETAXEL [Suspect]
     Active Substance: DOCETAXEL
     Indication: Breast cancer
     Dosage: UNK
     Route: 041
  2. EPIRUBICIN [Suspect]
     Active Substance: EPIRUBICIN
     Indication: Breast cancer
     Dosage: UNK
  3. CYCLOPHOSPHAMIDE [Suspect]
     Active Substance: CYCLOPHOSPHAMIDE
     Indication: Breast cancer
     Dosage: UNK
  4. ABEMACICLIB [Concomitant]
     Active Substance: ABEMACICLIB
     Indication: Product used for unknown indication
     Dosage: 100 MG, QD
  5. ANASTROZOLE [Concomitant]
     Active Substance: ANASTROZOLE
     Indication: Product used for unknown indication
     Dosage: 1 MG, QD
  6. ACETAMINOPHEN [Concomitant]
     Active Substance: ACETAMINOPHEN
     Indication: Product used for unknown indication
     Dosage: 1500 MG, QD
  7. MAGNESIUM OXIDE [Concomitant]
     Active Substance: MAGNESIUM OXIDE
     Indication: Product used for unknown indication
     Dosage: 1500 MG, QD

REACTIONS (21)
  - Neuromyelitis optica spectrum disorder [Recovering/Resolving]
  - Hypoaesthesia [Recovering/Resolving]
  - Chest pain [Recovering/Resolving]
  - Muscular weakness [Recovered/Resolved]
  - Movement disorder [Recovering/Resolving]
  - Decreased vibratory sense [Recovering/Resolving]
  - Bladder disorder [Recovering/Resolving]
  - Anorectal disorder [Recovering/Resolving]
  - Optic disc oedema [Recovering/Resolving]
  - Cataract [Recovering/Resolving]
  - Optic nerve disorder [Recovering/Resolving]
  - Demyelinating polyneuropathy [Recovering/Resolving]
  - Myelitis [Recovering/Resolving]
  - Optic neuropathy [Recovering/Resolving]
  - Sensory disturbance [Recovering/Resolving]
  - Hyporeflexia [Recovering/Resolving]
  - Pupillary reflex impaired [Recovering/Resolving]
  - Spinal cord injury cervical [Recovering/Resolving]
  - Dysuria [Recovering/Resolving]
  - Constipation [Recovering/Resolving]
  - Neuroma [Recovering/Resolving]

NARRATIVE: CASE EVENT DATE: 20230101
